FAERS Safety Report 4552343-9 (Version None)
Quarter: 2005Q1

REPORT INFORMATION
  Report Type: 
  Country: None (occurrence: None)
  Receive Date: 20050114
  Receipt Date: 20040212
  Transmission Date: 20050727
  Serious: No
  Sender: FDA-Public Use
  Company Number: US-GLAXOSMITHKLINE-A0498013A

PATIENT
  Age: 33 Year
  Sex: Male

DRUGS (4)
  1. IMITREX [Suspect]
     Indication: MIGRAINE
     Dosage: 100MG VARIABLE DOSE
     Route: 048
  2. TOPAMAX [Concomitant]
  3. WELLBUTRIN SR [Concomitant]
  4. IMITREX [Concomitant]

REACTIONS (1)
  - DRUG INEFFECTIVE [None]
